FAERS Safety Report 13708081 (Version 1)
Quarter: 2017Q2

REPORT INFORMATION
  Report Type: Spontaneous
  Country: US (occurrence: US)
  Receive Date: 20170630
  Receipt Date: 20170630
  Transmission Date: 20170830
  Serious: No
  Sender: FDA-Public Use
  Company Number: US-IPSEN BIOPHARMACEUTICALS, INC.-2015-7239

PATIENT

DRUGS (1)
  1. LANREOTIDE AUTOGEL [Suspect]
     Active Substance: LANREOTIDE
     Indication: PRODUCT USED FOR UNKNOWN INDICATION
     Dosage: NOT REPORTED
     Route: 065

REACTIONS (1)
  - Injection site mass [Unknown]
